FAERS Safety Report 16589508 (Version 3)
Quarter: 2023Q1

REPORT INFORMATION
  Report Type: Spontaneous
  Country: FR (occurrence: FR)
  Receive Date: 20190718
  Receipt Date: 20230302
  Transmission Date: 20230417
  Serious: Yes (Hospitalization)
  Sender: FDA-Public Use
  Company Number: None

PATIENT
  Age: 72 Year
  Sex: Female
  Weight: 84 kg

DRUGS (13)
  1. AMOXICILLIN [Suspect]
     Active Substance: AMOXICILLIN
     Indication: Pyrexia
     Dosage: UNKNOWN
     Route: 048
     Dates: start: 20190203, end: 20190210
  2. TRUXIMA [Concomitant]
     Active Substance: RITUXIMAB-ABBS
     Indication: Nodal marginal zone B-cell lymphoma stage IV
     Route: 042
     Dates: start: 20190122, end: 20190213
  3. BACTRIM [Concomitant]
     Active Substance: SULFAMETHOXAZOLE\TRIMETHOPRIM
     Indication: Prophylaxis
     Route: 048
     Dates: start: 20190123, end: 20190304
  4. ROXITHROMYCIN [Concomitant]
     Active Substance: ROXITHROMYCIN
     Indication: Febrile neutropenia
     Route: 048
     Dates: start: 20190213, end: 20190219
  5. LEUCOVORIN CALCIUM [Concomitant]
     Active Substance: LEUCOVORIN CALCIUM
     Indication: Prophylaxis
     Dosage: 1 DOSAGE FORM
     Route: 048
  6. SOLUPRED [Concomitant]
     Indication: Nodal marginal zone B-cell lymphoma stage IV
     Route: 048
     Dates: start: 20190122, end: 20190122
  7. ELDISINE [Concomitant]
     Active Substance: VINDESINE SULFATE
     Indication: Nodal marginal zone B-cell lymphoma stage IV
     Route: 041
     Dates: start: 20190122, end: 20190122
  8. KARDEGIC [Concomitant]
     Active Substance: ASPIRIN DL-LYSINE
     Indication: Product used for unknown indication
     Route: 048
     Dates: end: 20190301
  9. TELMISARTAN [Concomitant]
     Active Substance: TELMISARTAN
     Indication: Product used for unknown indication
     Route: 048
     Dates: end: 20190301
  10. CHOLECALCIFEROL [Concomitant]
     Active Substance: CHOLECALCIFEROL
     Indication: Vitamin supplementation
     Route: 048
     Dates: end: 20190301
  11. CYCLOPHOSPHAMIDE [Concomitant]
     Active Substance: CYCLOPHOSPHAMIDE
     Indication: Nodal marginal zone B-cell lymphoma stage IV
     Route: 041
     Dates: start: 20190122, end: 20190122
  12. CLARITHROMYCIN [Concomitant]
     Active Substance: CLARITHROMYCIN
     Indication: Pyrexia
     Route: 048
     Dates: start: 20190203
  13. ALLOPURINOL [Concomitant]
     Active Substance: ALLOPURINOL
     Indication: Prophylaxis
     Route: 048
     Dates: start: 20190123, end: 20190203

REACTIONS (3)
  - Oedema peripheral [Recovered/Resolved]
  - Rash maculo-papular [Recovered/Resolved]
  - Eosinophilia [Recovered/Resolved]

NARRATIVE: CASE EVENT DATE: 20190217
